FAERS Safety Report 4727010-9 (Version None)
Quarter: 2005Q3

REPORT INFORMATION
  Report Type: 
  Country: None (occurrence: None)
  Receive Date: 20050726
  Receipt Date: 20050726
  Transmission Date: 20060218
  Serious: Yes (Life-Threatening)
  Sender: FDA-Public Use
  Company Number: None

PATIENT
  Sex: Male

DRUGS (1)
  1. NOREPINEPHRINE [Suspect]
     Dosage: 2 MCG/KG/MIN INTRAVENOU
     Route: 042
     Dates: start: 20050513, end: 20050515

REACTIONS (3)
  - ARRHYTHMIA [None]
  - HYPERTENSION [None]
  - TACHYCARDIA [None]
